FAERS Safety Report 11201836 (Version 1)
Quarter: 2015Q2

REPORT INFORMATION
  Report Type: Spontaneous
  Country: US (occurrence: None)
  Receive Date: 20150618
  Receipt Date: 20150618
  Transmission Date: 20150821
  Serious: No
  Sender: FDA-Public Use
  Company Number: None

PATIENT
  Sex: Female

DRUGS (1)
  1. REVATIO [Suspect]
     Active Substance: SILDENAFIL CITRATE
     Indication: PULMONARY ARTERIAL HYPERTENSION
     Dates: start: 20150614, end: 20150616

REACTIONS (6)
  - Flatulence [None]
  - Reaction to drug excipients [None]
  - Crying [None]
  - Diarrhoea [None]
  - Oxygen saturation decreased [None]
  - Haematemesis [None]

NARRATIVE: CASE EVENT DATE: 20150616
